FAERS Safety Report 6604861-7 (Version None)
Quarter: 2010Q1

REPORT INFORMATION
  Report Type: 
  Country: None (occurrence: None)
  Receive Date: 20100226
  Receipt Date: 20100219
  Transmission Date: 20100710
  Serious: Yes (Other)
  Sender: FDA-Public Use
  Company Number: A0845446B

PATIENT
  Age: 3 Year
  Sex: Male

DRUGS (6)
  1. LAMICTAL CD [Suspect]
     Dosage: 200MG PER DAY
     Dates: start: 20050101
  2. FOLIC ACID [Concomitant]
  3. CELEBREX [Concomitant]
  4. VALIUM [Concomitant]
  5. TYLENOL-500 [Concomitant]
  6. PHENOBARBITAL TAB [Concomitant]

REACTIONS (2)
  - APHASIA [None]
  - DRUG EXPOSURE DURING PREGNANCY [None]
